FAERS Safety Report 4690335-X (Version None)
Quarter: 2005Q2

REPORT INFORMATION
  Report Type: 
  Country: None (occurrence: None)
  Receive Date: 20050613
  Receipt Date: 20050526
  Transmission Date: 20051028
  Serious: Yes (Hospitalization)
  Sender: FDA-Public Use
  Company Number: DSA_26017_2005

PATIENT
  Age: 59 Year
  Sex: Female
  Weight: 53.5244 kg

DRUGS (9)
  1. CARDIZEM [Suspect]
     Indication: HYPERTENSION
     Dosage: 30 MG TID PO
     Route: 048
     Dates: start: 19820101
  2. CARDIZEM [Suspect]
     Indication: HYPERTENSION
     Dosage: 30 MG 5 XD  PO
     Route: 048
  3. CARDIZEM [Suspect]
     Indication: HYPERTENSION
     Dosage: DF
  4. CARDIZEM CD [Suspect]
     Indication: HYPERTENSION
     Dosage: DF
  5. CARDIZEM LA [Suspect]
     Indication: HYPERTENSION
     Dosage: DF
  6. AVAPRO [Suspect]
     Indication: HYPERTENSION
     Dosage: DF
  7. INDERAL [Concomitant]
  8. LOPRESSOR [Concomitant]
  9. CATAPRES [Concomitant]

REACTIONS (13)
  - BLOOD PRESSURE INADEQUATELY CONTROLLED [None]
  - CHEST PAIN [None]
  - CONSTIPATION [None]
  - DIARRHOEA [None]
  - DRUG EFFECT DECREASED [None]
  - HYPERSOMNIA [None]
  - OEDEMA PERIPHERAL [None]
  - RENAL FAILURE [None]
  - RENAL TRANSPLANT [None]
  - ROAD TRAFFIC ACCIDENT [None]
  - SPLENECTOMY [None]
  - THERAPEUTIC RESPONSE UNEXPECTED WITH DRUG SUBSTITUTION [None]
  - VOMITING [None]
